FAERS Safety Report 4334356-5 (Version None)
Quarter: 2004Q2

REPORT INFORMATION
  Report Type: 
  Country: None (occurrence: None)
  Receive Date: 20040405
  Receipt Date: 20040318
  Transmission Date: 20050107
  Serious: Yes (Death, Other)
  Sender: FDA-Public Use
  Company Number: 2004-DE-01367GD

PATIENT
  Sex: Female

DRUGS (2)
  1. NEVIRAPINE (NEVIRAPINE) (NR) [Suspect]
     Indication: HIV INFECTION
     Dosage: NR (NR), NR
  2. ZIDOVUDINE [Suspect]
     Indication: HIV INFECTION
     Dosage: NR (NR); NR

REACTIONS (2)
  - HEPATIC FAILURE [None]
  - HEPATOTOXICITY [None]
